FAERS Safety Report 6520304-6 (Version None)
Quarter: 2009Q4

REPORT INFORMATION
  Report Type: 
  Country: None (occurrence: None)
  Receive Date: 20091229
  Receipt Date: 20091223
  Transmission Date: 20100525
  Serious: Yes (Hospitalization)
  Sender: FDA-Public Use
  Company Number: US-MEDIMMUNE-MEDI-0009966

PATIENT
  Sex: Female
  Weight: 4.4 kg

DRUGS (4)
  1. SYNAGIS [Suspect]
     Dates: start: 20091106, end: 20091106
  2. SYNAGIS [Suspect]
     Dates: start: 20091208, end: 20091208
  3. POLYVISOL [Concomitant]
  4. ZANTAC [Concomitant]

REACTIONS (1)
  - MENINGITIS VIRAL [None]
